FAERS Safety Report 5714298-0 (Version None)
Quarter: 2008Q2

REPORT INFORMATION
  Report Type: 
  Country: None (occurrence: None)
  Receive Date: 20080421
  Receipt Date: 20080410
  Transmission Date: 20081010
  Serious: Yes (Death)
  Sender: FDA-Public Use
  Company Number: 2008JP001821

PATIENT
  Age: 76 Year
  Sex: Female
  Weight: 49 kg

DRUGS (11)
  1. VESICARE [Suspect]
     Indication: HYPERTONIC BLADDER
     Dosage: 5 MG, UID/QD, ORAL
     Route: 048
     Dates: start: 20070319, end: 20070325
  2. DIOVAN [Concomitant]
  3. AMLODIPINE BESYLATE [Concomitant]
  4. D ALFA (ALFACALCIDOL) [Concomitant]
  5. RISEDRONATE SODIUM [Concomitant]
  6. RABEPRAZOLE SODIUM [Concomitant]
  7. SENNOSIDE (SENNOSIDE A+B CALCIUM) [Concomitant]
  8. SIGMART (NICORANDIL) [Concomitant]
  9. ISOSORBIDE MONONITRATE [Concomitant]
  10. GRIMAC (LEVOGLUTAMIDE, SODIUM GUALENATE) [Concomitant]
  11. ZYRTEC [Concomitant]

REACTIONS (2)
  - CARDIAC DISORDER [None]
  - SUDDEN DEATH [None]
